FAERS Safety Report 18283160 (Version 4)
Quarter: 2024Q3

REPORT INFORMATION
  Report Type: Spontaneous
  Country: US (occurrence: US)
  Receive Date: 20200918
  Receipt Date: 20240722
  Transmission Date: 20241017
  Serious: Yes (Hospitalization)
  Sender: VERTEX
  Company Number: US-VERTEX PHARMACEUTICALS-2020-013883

PATIENT
  Sex: Female

DRUGS (9)
  1. TRIKAFTA [Suspect]
     Active Substance: ELEXACAFTOR\IVACAFTOR\TEZACAFTOR
     Indication: Cystic fibrosis
     Dosage: 2 ORANGE TABS AM AND 1 BLUE TAB PM
     Route: 048
     Dates: start: 20191114
  2. NIFEDIPINE [Concomitant]
     Active Substance: NIFEDIPINE
  3. GABAPENTIN [Concomitant]
     Active Substance: GABAPENTIN
  4. AMITIZA [Concomitant]
     Active Substance: LUBIPROSTONE
  5. DULOXETINE [Concomitant]
     Active Substance: DULOXETINE
  6. LORAZEPAM [Concomitant]
     Active Substance: LORAZEPAM
  7. ALBUTEROL [Concomitant]
     Active Substance: ALBUTEROL
  8. PULMOZYME [Concomitant]
     Active Substance: DORNASE ALFA
  9. LINEZOLID [Concomitant]
     Active Substance: LINEZOLID

REACTIONS (2)
  - Pre-eclampsia [Not Recovered/Not Resolved]
  - Exposure during pregnancy [Unknown]

NARRATIVE: CASE EVENT DATE: 20190101
